FAERS Safety Report 21860967 (Version 1)
Quarter: 2023Q1

REPORT INFORMATION
  Report Type: Spontaneous
  Country: US (occurrence: None)
  Receive Date: 20230113
  Receipt Date: 20230113
  Transmission Date: 20230418
  Serious: Yes (Other)
  Sender: FDA-Public Use
  Company Number: None

PATIENT
  Age: 57 Year
  Sex: Female
  Weight: 46.35 kg

DRUGS (15)
  1. OMNIPAQUE [Suspect]
     Active Substance: IOHEXOL
     Indication: Urinary tract disorder
     Dates: start: 20221223, end: 20221223
  2. MESTINON [Concomitant]
     Active Substance: PYRIDOSTIGMINE BROMIDE
  3. TACROLIMUS [Concomitant]
     Active Substance: TACROLIMUS
  4. PRILOSEC [Concomitant]
     Active Substance: OMEPRAZOLE MAGNESIUM
  5. ZANTAC [Concomitant]
     Active Substance: RANITIDINE HYDROCHLORIDE
  6. REMICADE [Concomitant]
     Active Substance: INFLIXIMAB
  7. METHOTREXATE [Concomitant]
     Active Substance: METHOTREXATE
  8. FOLIC ACID [Concomitant]
     Active Substance: FOLIC ACID
  9. ROSUVASTATIN [Concomitant]
     Active Substance: ROSUVASTATIN
  10. VITAMIN D3 [Concomitant]
     Active Substance: CHOLECALCIFEROL
  11. D-MANNOSE [Concomitant]
  12. PROBIOTICS NOS [Concomitant]
     Active Substance: PROBIOTICS NOS
  13. COENZYME Q10 [Concomitant]
     Active Substance: DIETARY SUPPLEMENT\UBIDECARENONE
  14. BENADRYL [Concomitant]
     Active Substance: DIPHENHYDRAMINE HYDROCHLORIDE
  15. MELATONIN [Concomitant]
     Active Substance: MELATONIN

REACTIONS (10)
  - Scan with contrast [None]
  - Pain in extremity [None]
  - Chest pain [None]
  - Pain in extremity [None]
  - Burning sensation [None]
  - Chest pain [None]
  - Infusion related reaction [None]
  - Insomnia [None]
  - Nausea [None]
  - Vein disorder [None]

NARRATIVE: CASE EVENT DATE: 20221223
